FAERS Safety Report 5321701-7 (Version None)
Quarter: 2007Q2

REPORT INFORMATION
  Report Type: 
  Country: None (occurrence: None)
  Receive Date: 20070510
  Receipt Date: 20070504
  Transmission Date: 20071010
  Serious: Yes (Death, Hospitalization)
  Sender: FDA-Public Use
  Company Number: US-SHR-US-2006-035704

PATIENT
  Age: 58 Year
  Sex: Male
  Weight: 121.6 kg

DRUGS (92)
  1. CAMPATH [Suspect]
     Dosage: 30 MG, D1-5 EVERY 28 DAYS
     Route: 058
     Dates: start: 20060605, end: 20060609
  2. CAMPATH [Suspect]
     Dosage: 30 MG, D1-5 EVERY 28 DAYS
     Route: 058
     Dates: start: 20060710, end: 20060714
  3. CAMPATH [Suspect]
     Dosage: 30 MG, D1-5 EVERY 28 DAYS
     Route: 058
     Dates: start: 20060807, end: 20060811
  4. CAMPATH [Suspect]
     Dosage: 30 MG, D1-5 EVERY 28 DAYS
     Route: 058
     Dates: start: 20060905, end: 20060911
  5. CAMPATH [Suspect]
     Dosage: 30 MG, D1-5 EVERY 28 DAYS
     Route: 058
     Dates: start: 20061023, end: 20061027
  6. FLUDARA [Suspect]
     Dosage: 60 MG/D, D1-5 EVERY 28 DAYS
     Route: 042
     Dates: start: 20060605, end: 20060609
  7. FLUDARA [Suspect]
     Dosage: 60 MG/D, D1-5 EVERY 28 DAYS
     Route: 042
     Dates: start: 20060710, end: 20060714
  8. FLUDARA [Suspect]
     Dosage: 60 MG/D, D1-5 EVERY 28 DAYS
     Route: 042
     Dates: start: 20060807, end: 20060811
  9. FLUDARA [Suspect]
     Dosage: 60 MG/D, D1-5 EVERY 28 DAYS
     Route: 042
     Dates: start: 20060905, end: 20060911
  10. FLUDARA [Suspect]
     Dosage: 30 MG/DAY, D1-5 EVERY 28 DAY
     Route: 042
     Dates: start: 20061023, end: 20061027
  11. NEULASTA [Concomitant]
     Indication: NEUTROPENIA
     Dosage: 6 MG, 1X/DAY
     Route: 058
     Dates: start: 20060919, end: 20060919
  12. NEULASTA [Concomitant]
     Dosage: 6 MG, 1X/DAY
     Route: 058
     Dates: start: 20061031, end: 20061031
  13. PHENERGAN ^AVENTIS PHARMA^ [Concomitant]
     Indication: HICCUPS
     Dosage: 25 MG, 1X/DAY
     Route: 042
     Dates: start: 20061115, end: 20061116
  14. PHENERGAN ^AVENTIS PHARMA^ [Concomitant]
     Dosage: 12.5 MG, 1X/DAY
     Route: 042
     Dates: start: 20061116, end: 20061116
  15. TYLENOL [Concomitant]
     Dosage: 650 MG, ROUND THE CLOCK
     Route: 048
     Dates: start: 20061101
  16. TYLENOL [Concomitant]
     Dosage: 650 MG, 1X/DAY
     Route: 048
     Dates: start: 20060605, end: 20060609
  17. BACTRIM DS [Concomitant]
     Dosage: 2 TABS MWF
     Dates: end: 20061101
  18. FAMVIR                                  /UNK/ [Concomitant]
     Dosage: 250 MG, 2X/DAY
     Route: 048
     Dates: start: 20060605, end: 20061114
  19. FAMVIR                                  /UNK/ [Concomitant]
     Dosage: 250 MG, 2X/DAY
     Route: 048
     Dates: start: 20061116, end: 20061118
  20. FLAGYL [Concomitant]
     Dosage: 250 MBQ, 3X/DAY
     Route: 048
     Dates: start: 20061110, end: 20061119
  21. GLYBURIDE [Concomitant]
     Dosage: 5 MG, 2X/DAY
     Route: 048
     Dates: start: 19980531, end: 20061114
  22. METFORMIN HCL [Concomitant]
     Dosage: 500 MG, 2X/DAY
     Route: 048
     Dates: end: 20061101
  23. NIFEDIPINE [Concomitant]
     Indication: HYPERTENSION
     Dosage: 60 MG, 1X/DAY
     Route: 048
     Dates: start: 19860101, end: 20061114
  24. NIFEDIPINE [Concomitant]
     Dosage: 60 MG, 1X/DAY
     Route: 048
     Dates: start: 20061119
  25. LISINOPRIL [Concomitant]
     Dosage: 40 MG, 1X/DAY
     Route: 048
     Dates: start: 19980101, end: 20061114
  26. LOVASTATIN [Concomitant]
     Dosage: 20 MG, 1X/DAY
     Route: 048
     Dates: start: 20050805, end: 20061116
  27. EPOGEN [Concomitant]
     Dates: start: 20061101
  28. ZOSYN [Concomitant]
     Dosage: 2.25 G, 3X/DAY
     Route: 042
     Dates: start: 20061114, end: 20061115
  29. ZOSYN [Concomitant]
     Dosage: 3.375 G, 3X/DAY
     Route: 042
     Dates: start: 20061115, end: 20061117
  30. DIFLUCAN [Concomitant]
     Dosage: 200 MG, 1X/DAY
     Route: 042
     Dates: start: 20061115, end: 20061115
  31. VANCOMYCIN [Concomitant]
     Dosage: 1 G, 1 DOSE
     Route: 042
     Dates: start: 20061114, end: 20061114
  32. INSULIN [Concomitant]
     Dates: start: 20061101
  33. ALLOPURINOL [Concomitant]
     Indication: PROPHYLAXIS
     Dosage: 300 MG, 1X/DAY
     Route: 048
     Dates: start: 20060603, end: 20060617
  34. BACTRIM DS [Concomitant]
     Dosage: 1 TAB(S), 2 DOSES
     Route: 048
     Dates: start: 20060605, end: 20061114
  35. BACTRIM DS [Concomitant]
     Dosage: M-W-F
     Route: 048
     Dates: start: 20061115, end: 20061117
  36. TYLENOL [Concomitant]
     Dosage: 650 MG, 1X/DAY
     Route: 048
     Dates: start: 20060605, end: 20060609
  37. TYLENOL [Concomitant]
     Dosage: 650 MG, 1X/DAY
     Route: 048
     Dates: start: 20060605, end: 20060609
  38. TYLENOL [Concomitant]
     Dosage: 650 MG, AS REQ'D
     Dates: start: 20060605, end: 20060606
  39. TYLENOL [Concomitant]
     Dosage: 650 MG, 1X/DAY
     Route: 048
     Dates: start: 20060610, end: 20060614
  40. TYLENOL [Concomitant]
     Dosage: 650 MG, 1X/DAY
     Route: 048
     Dates: start: 20060807, end: 20060811
  41. TYLENOL [Concomitant]
     Dosage: 650 MG, 1X/DAY
     Route: 048
     Dates: start: 20060905, end: 20060908
  42. TYLENOL [Concomitant]
     Dosage: 650 MG, 1X/DAY
     Route: 048
     Dates: start: 20060911, end: 20060911
  43. TYLENOL [Concomitant]
     Dosage: 650 MG, 1X/DAY
     Route: 048
     Dates: start: 20060710, end: 20060711
  44. TYLENOL [Concomitant]
     Dosage: 650 MG, 1X/DAY
     Route: 048
     Dates: start: 20060712, end: 20060813
  45. TYLENOL [Concomitant]
     Dosage: 1000 MG, 1X/DAY
     Route: 048
     Dates: start: 20060809, end: 20060809
  46. TYLENOL [Concomitant]
     Dosage: 1000 MG, 1X/DAY
     Route: 048
     Dates: start: 20060905, end: 20060905
  47. TYLENOL [Concomitant]
     Dosage: 650 MG, 1X/DAY
     Route: 048
     Dates: start: 20061023, end: 20061027
  48. TYLENOL [Concomitant]
     Dosage: 650 MG, AS REQ'D
     Route: 048
     Dates: start: 20061031, end: 20061118
  49. BENADRYL ^PARKE DAVIS^                  /AUT/ [Concomitant]
     Dosage: 25 MG, 1X/DAY
     Route: 042
     Dates: start: 20060605, end: 20060609
  50. BENADRYL ^PARKE DAVIS^                  /AUT/ [Concomitant]
     Dosage: 25 MG, 1X/DAY
     Route: 042
     Dates: start: 20060610, end: 20060614
  51. BENADRYL ^PARKE DAVIS^                  /AUT/ [Concomitant]
     Dosage: 25 MG, 1X/DAY
     Route: 042
     Dates: start: 20060807, end: 20060811
  52. BENADRYL ^PARKE DAVIS^                  /AUT/ [Concomitant]
     Dosage: 25 MG, 1X/DAY
     Route: 042
     Dates: start: 20060905, end: 20060908
  53. BENADRYL ^PARKE DAVIS^                  /AUT/ [Concomitant]
     Dosage: 25 MG, 1X/DAY
     Route: 042
     Dates: start: 20060911, end: 20060911
  54. BENADRYL ^PARKE DAVIS^                  /AUT/ [Concomitant]
     Dosage: 50 MG, 1X/DAY
     Route: 048
     Dates: start: 20060813, end: 20060816
  55. BENADRYL ^PARKE DAVIS^                  /AUT/ [Concomitant]
     Dosage: 25 MG, 1X/DAY
     Route: 048
     Dates: start: 20061023, end: 20061023
  56. BENADRYL ^PARKE DAVIS^                  /AUT/ [Concomitant]
     Dosage: 50 MG, 1X/DAY
     Route: 048
     Dates: start: 20061024, end: 20061027
  57. ANZEMET [Concomitant]
     Dosage: 100 MG, 1X/DAY
     Route: 042
     Dates: start: 20060605, end: 20060608
  58. ANZEMET [Concomitant]
     Dosage: 100 MG, 1X/DAY
     Route: 042
     Dates: start: 20060610, end: 20060613
  59. ANZEMET [Concomitant]
     Dosage: 100 MG, 1X/DAY
     Route: 042
     Dates: start: 20060807, end: 20060810
  60. ANZEMET [Concomitant]
     Dosage: 100 MG, 1X/DAY
     Route: 042
     Dates: start: 20061023, end: 20061026
  61. HEPARIN [Concomitant]
     Dosage: 1000 IU, AS REQ'D
     Route: 042
     Dates: start: 20060605, end: 20061128
  62. ALOXI [Concomitant]
     Dosage: 250 A?G, 1X/DAY
     Route: 042
     Dates: start: 20060609, end: 20060609
  63. ALOXI [Concomitant]
     Dosage: 250 A?G, 1X/DAY
     Route: 042
     Dates: start: 20060614, end: 20060614
  64. ALOXI [Concomitant]
     Dosage: 250 A?G, 1X/DAY
     Route: 042
     Dates: start: 20060811, end: 20060811
  65. ALOXI [Concomitant]
     Dosage: 250 A?G, 1X/DAY
     Route: 048
     Dates: start: 20060911, end: 20060911
  66. ALOXI [Concomitant]
     Dosage: 250 A?G, 1X/DAY
     Route: 042
     Dates: start: 20061027, end: 20061027
  67. SOLU-MEDROL [Concomitant]
     Dosage: 120 MG, 1X/DAY
     Route: 042
     Dates: start: 20060606, end: 20060606
  68. SOLU-MEDROL [Concomitant]
     Dosage: 120 MG, 1X/DAY
     Route: 042
     Dates: start: 20060607, end: 20060609
  69. SOLU-MEDROL [Concomitant]
     Dosage: 40 MG, 1X/DAY
     Route: 042
     Dates: start: 20060611, end: 20060611
  70. SOLU-MEDROL [Concomitant]
     Dosage: 60 MG, 1X/DAY
     Route: 042
     Dates: start: 20061023, end: 20061023
  71. SOLU-MEDROL [Concomitant]
     Dosage: 60 MG, 1X/DAY
     Route: 042
     Dates: start: 20061024, end: 20061024
  72. SOLU-MEDROL [Concomitant]
     Dosage: 40 MG, 1X/DAY
     Route: 042
     Dates: start: 20061025, end: 20061027
  73. ARANESP [Concomitant]
     Dosage: 200 A?G, 1X/DAY
     Route: 058
     Dates: start: 20060613, end: 20060613
  74. ARANESP [Concomitant]
     Dosage: 200 A?G, 1X/DAY
     Route: 058
     Dates: start: 20060620, end: 20060620
  75. ARANESP [Concomitant]
     Dosage: 200 A?G, 1X/DAY
     Route: 058
     Dates: start: 20060625, end: 20060625
  76. ARANESP [Concomitant]
     Dosage: 200 A?G, 1X/DAY
     Route: 058
     Dates: start: 20060807, end: 20060807
  77. ARANESP [Concomitant]
     Dosage: 200 A?G, 1X/DAY
     Route: 042
     Dates: start: 20060815, end: 20060815
  78. ARANESP [Concomitant]
     Dosage: 200 A?G, 1X/DAY
     Route: 042
     Dates: start: 20060919, end: 20060919
  79. ARANESP [Concomitant]
     Dosage: 200 A?G, 1X/DAY
     Route: 042
     Dates: start: 20061002, end: 20061002
  80. VALCYTE [Concomitant]
     Dosage: 900 MG, 2X/DAY
     Route: 048
     Dates: start: 20060801, end: 20060822
  81. AMOXICILLIN [Concomitant]
     Dosage: 500 MG, 2X/DAY
     Route: 048
     Dates: start: 20060729, end: 20060807
  82. DIFLUCAN [Concomitant]
     Indication: PERIODONTAL DISEASE
     Dosage: 200 MG, 1X/DAY
     Route: 048
     Dates: start: 20060729, end: 20060729
  83. DIFLUCAN [Concomitant]
     Dosage: 100 MG, 1X/DAY
     Route: 048
     Dates: start: 20060730, end: 20060811
  84. DOXYCYCLINE [Concomitant]
     Indication: PERIODONTAL DISEASE
     Dosage: UNK, 2X/DAY
     Route: 061
     Dates: start: 20060629, end: 20060802
  85. LEVAQUIN [Concomitant]
     Dosage: 750 MG, 1X/DAY
     Route: 048
     Dates: start: 20060922, end: 20060926
  86. LEVAQUIN [Concomitant]
     Dosage: 500 MG, 1X/DAY
     Route: 048
     Dates: start: 20061102, end: 20061111
  87. LEVAQUIN [Concomitant]
     Dosage: 500 MG, EVERY 2D
     Route: 048
     Dates: start: 20061116, end: 20061120
  88. CLARITIN [Concomitant]
     Indication: TREMOR
     Dosage: 1 TAB(S), 1X/DAY
     Route: 048
     Dates: start: 20061104, end: 20061105
  89. PROCRIT [Concomitant]
     Dosage: 40000 IU, 1X/WEEK
     Route: 058
     Dates: start: 20061117, end: 20061117
  90. GENTAMYCIN-MP [Concomitant]
     Dosage: 110 MG, 1X/DAY
     Route: 042
     Dates: start: 20061118, end: 20061118
  91. SODIUM BICARBONATE [Concomitant]
     Indication: METABOLIC ACIDOSIS
     Dosage: 2 AMP, 2X/DAY
     Route: 042
     Dates: start: 20061118, end: 20061118
  92. SODIUM BICARBONATE [Concomitant]
     Route: 042
     Dates: start: 20061124, end: 20061128

REACTIONS (26)
  - BACTERAEMIA [None]
  - CATHETER RELATED INFECTION [None]
  - CATHETER SITE HAEMORRHAGE [None]
  - CEREBRAL ATROPHY [None]
  - CHOLELITHIASIS [None]
  - COAGULOPATHY [None]
  - DIALYSIS [None]
  - DISSEMINATED INTRAVASCULAR COAGULATION [None]
  - ENTEROCOCCAL INFECTION [None]
  - HAEMORRHAGE [None]
  - HEPATIC ENCEPHALOPATHY [None]
  - HEPATIC FAILURE [None]
  - HYPOTENSION [None]
  - HYPOXIA [None]
  - INTESTINAL ISCHAEMIA [None]
  - MENTAL STATUS CHANGES [None]
  - MULTI-ORGAN FAILURE [None]
  - PANCYTOPENIA [None]
  - PYREXIA [None]
  - RENAL FAILURE ACUTE [None]
  - RESPIRATORY FAILURE [None]
  - SEPSIS [None]
  - SOMNOLENCE [None]
  - TREMOR [None]
  - TUMOUR LYSIS SYNDROME [None]
  - VIRAL INFECTION [None]
